FAERS Safety Report 15221128 (Version 6)
Quarter: 2019Q3

REPORT INFORMATION
  Report Type: Report from Study
  Country: CA (occurrence: CA)
  Receive Date: 20180731
  Receipt Date: 20190913
  Transmission Date: 20191004
  Serious: Yes (Hospitalization, Other)
  Sender: FDA-Public Use
  Company Number: CA-GLAXOSMITHKLINE-CA2018GSK136032

PATIENT
  Age: 77 Year
  Sex: Female

DRUGS (4)
  1. NUCALA [Suspect]
     Active Substance: MEPOLIZUMAB
     Indication: ASTHMA
     Dosage: 100 MG, Z, MONTHLY
     Route: 042
     Dates: start: 20180814
  2. SALBUTAMOL SULPHATE [Suspect]
     Active Substance: ALBUTEROL SULFATE
     Indication: PRODUCT USED FOR UNKNOWN INDICATION
     Dosage: UNK
  3. NUCALA [Suspect]
     Active Substance: MEPOLIZUMAB
     Dosage: 100 MG, Z
     Route: 042
     Dates: start: 20190812
  4. NUCALA [Suspect]
     Active Substance: MEPOLIZUMAB
     Dosage: 100 MG, Z, MONTHLY
     Route: 042

REACTIONS (15)
  - Sputum discoloured [Not Recovered/Not Resolved]
  - Coccydynia [Unknown]
  - Wheezing [Unknown]
  - Pyrexia [Recovered/Resolved]
  - Pneumonia [Unknown]
  - Dyspnoea [Unknown]
  - Pain in extremity [Unknown]
  - Productive cough [Not Recovered/Not Resolved]
  - Back pain [Unknown]
  - Fall [Unknown]
  - Cough [Unknown]
  - Asthma [Unknown]
  - Sleep disorder due to a general medical condition [Unknown]
  - Loss of personal independence in daily activities [Unknown]
  - Aphonia [Recovered/Resolved]

NARRATIVE: CASE EVENT DATE: 20181230
